FAERS Safety Report 4263210-2 (Version None)
Quarter: 2004Q1

REPORT INFORMATION
  Report Type: 
  Country: None (occurrence: None)
  Receive Date: 20040105
  Receipt Date: 20031224
  Transmission Date: 20041129
  Serious: Yes (Death, Hospitalization)
  Sender: FDA-Public Use
  Company Number: JP-BRISTOL-MYERS SQUIBB COMPANY-12464442

PATIENT
  Age: 68 Year
  Sex: Male

DRUGS (5)
  1. BLEOMYCIN [Suspect]
     Route: 042
     Dates: start: 20030804, end: 20031113
  2. KYTRIL [Concomitant]
     Route: 042
     Dates: start: 20030804, end: 20031113
  3. ADRIAMYCIN PFS [Concomitant]
     Route: 042
     Dates: start: 20030804, end: 20031113
  4. EXSAL [Concomitant]
     Route: 042
     Dates: start: 20030804, end: 20031113
  5. DACARBAZINE [Concomitant]
     Route: 042
     Dates: start: 20030804, end: 20031113

REACTIONS (2)
  - INTERSTITIAL LUNG DISEASE [None]
  - RESPIRATORY FAILURE [None]
